APPROVED DRUG PRODUCT: MINOXIDIL (FOR WOMEN)
Active Ingredient: MINOXIDIL
Strength: 2%
Dosage Form/Route: SOLUTION;TOPICAL
Application: A074743 | Product #001
Applicant: SIGHT PHARMACEUTICALS INC
Approved: Oct 18, 1996 | RLD: No | RS: No | Type: DISCN